FAERS Safety Report 7138268-3 (Version None)
Quarter: 2010Q4

REPORT INFORMATION
  Report Type: 
  Country: None (occurrence: None)
  Receive Date: 20101206
  Receipt Date: 20101126
  Transmission Date: 20110411
  Serious: Yes (Disabling)
  Sender: FDA-Public Use
  Company Number: CH-MPIJNJ-2010-05976

PATIENT

DRUGS (15)
  1. VELCADE [Suspect]
     Indication: MULTIPLE MYELOMA
     Dosage: 1.3 MG/M2, CYCLIC
     Route: 042
     Dates: start: 20090526, end: 20091112
  2. ZOMETA [Suspect]
     Indication: MULTIPLE MYELOMA
     Dosage: 4 MG, UNK
     Route: 042
     Dates: start: 20061101
  3. DEXAMETHASONE [Concomitant]
     Dosage: 40 MG, UNK
     Dates: start: 20090526, end: 20091112
  4. ASPIRINE BAYER [Concomitant]
     Dosage: 100 MG, UNK
     Route: 048
  5. SIMVASTATIN [Concomitant]
     Dosage: 20 UNK, UNK
  6. DISTRANEURIN                       /00027501/ [Concomitant]
  7. EFFEXOR [Concomitant]
     Dosage: 150 MG, UNK
     Route: 048
  8. KEPPRA [Concomitant]
     Dosage: 500 MG, UNK
     Route: 048
  9. STILNOX                            /00914901/ [Concomitant]
     Dosage: 12.5 MG, UNK
     Route: 048
  10. DAFALGAN                           /00020001/ [Concomitant]
     Dosage: 1 G, UNK
     Route: 048
  11. OXYNORM [Concomitant]
     Dosage: 5 MG, UNK
     Route: 048
  12. NEXIUM [Concomitant]
     Dosage: 20 MG, UNK
     Route: 048
  13. FOLIC ACID [Concomitant]
     Dosage: 5 MG, UNK
     Route: 048
  14. IMPORTAL [Concomitant]
     Dosage: 20 ML, UNK
     Route: 048
  15. DERMOVATE [Concomitant]
     Dosage: 1 DF, UNK
     Route: 061

REACTIONS (1)
  - OSTEOMYELITIS [None]
